FAERS Safety Report 21982326 (Version 1)
Quarter: 2023Q1

REPORT INFORMATION
  Report Type: Report from Study
  Country: GB (occurrence: GB)
  Receive Date: 20230213
  Receipt Date: 20230213
  Transmission Date: 20230417
  Serious: Yes (Hospitalization)
  Sender: FDA-Public Use
  Company Number: GB-CELLTRION INC.-2023GB002926

PATIENT

DRUGS (3)
  1. RITUXIMAB [Suspect]
     Active Substance: RITUXIMAB
     Indication: Extranodal marginal zone B-cell lymphoma (MALT type) refractory
     Dosage: 375 MILLIGRAM/SQ. METER,WEEKLY FOR CYCLE 1 THEN DAY 1 OF CYCLES 2 TO 5
     Route: 042
     Dates: start: 20220608
  2. LENALIDOMIDE [Suspect]
     Active Substance: LENALIDOMIDE
     Indication: Extranodal marginal zone B-cell lymphoma (MALT type) refractory
     Dosage: 20 MILLIGRAM, DAILY, DAYS 1 TO 21 OF EACH 28-DAY CYCLE FOR CYCLES 1 TO 12
     Route: 048
     Dates: start: 20220607, end: 20220727
  3. LENALIDOMIDE [Suspect]
     Active Substance: LENALIDOMIDE
     Dosage: UNK
     Route: 048
     Dates: start: 20220811

REACTIONS (2)
  - Anaemia [Unknown]
  - Off label use [Unknown]
